FAERS Safety Report 7889903-3 (Version None)
Quarter: 2011Q4

REPORT INFORMATION
  Report Type: 
  Country: None (occurrence: None)
  Receive Date: 20111103
  Receipt Date: 20111025
  Transmission Date: 20120403
  Serious: Yes (Other)
  Sender: FDA-Public Use
  Company Number: CA-ELI_LILLY_AND_COMPANY-CA201110006631

PATIENT
  Sex: Female

DRUGS (7)
  1. LEVOTHYROXINE SODIUM [Concomitant]
     Dosage: UNK
  2. LANTUS [Concomitant]
     Dosage: UNK, BID
  3. ASPIRIN [Concomitant]
     Dosage: UNK
  4. HUMALOG [Suspect]
     Indication: DIABETES MELLITUS
     Dosage: 7 U, TID
  5. LIPITOR [Concomitant]
     Dosage: UNK
  6. ALTACE [Concomitant]
     Dosage: UNK
  7. OXAZEPAM [Concomitant]
     Indication: SLEEP DISORDER
     Dosage: 30 MG, UNK

REACTIONS (8)
  - ROAD TRAFFIC ACCIDENT [None]
  - HYPOGLYCAEMIA UNAWARENESS [None]
  - MEMORY IMPAIRMENT [None]
  - BLOOD GLUCOSE INCREASED [None]
  - BLOOD GLUCOSE DECREASED [None]
  - TYPE 1 DIABETES MELLITUS [None]
  - VISUAL ACUITY REDUCED [None]
  - CATARACT [None]
